FAERS Safety Report 15059863 (Version 2)
Quarter: 2019Q3

REPORT INFORMATION
  Report Type: Spontaneous
  Country: US (occurrence: US)
  Receive Date: 20180625
  Receipt Date: 20190903
  Transmission Date: 20191004
  Serious: Yes (Other)
  Sender: FDA-Public Use
  Company Number: US-SA-2018SA130295

PATIENT
  Age: 36 Year
  Sex: Female
  Weight: 54.43 kg

DRUGS (14)
  1. HERCEPTIN [Concomitant]
     Active Substance: TRASTUZUMAB
  2. OXYCODONE [Concomitant]
     Active Substance: OXYCODONE
  3. TAXOTERE [Suspect]
     Active Substance: DOCETAXEL
     Indication: BREAST CANCER FEMALE
     Dosage: 75 MG, Q3W
     Route: 042
     Dates: start: 20150528, end: 20150528
  4. KYTRIL [Concomitant]
     Active Substance: GRANISETRON HYDROCHLORIDE
  5. BENADRYL [Concomitant]
     Active Substance: DIPHENHYDRAMINE HYDROCHLORIDE
  6. ZANTAC [Concomitant]
     Active Substance: RANITIDINE HYDROCHLORIDE
  7. TAXOTERE [Suspect]
     Active Substance: DOCETAXEL
     Dosage: 75 MG, Q3W
     Route: 042
     Dates: start: 20150910, end: 20150910
  8. SODIUM CHLORIDE. [Concomitant]
     Active Substance: SODIUM CHLORIDE
  9. TYLENOL [Concomitant]
     Active Substance: ACETAMINOPHEN
  10. PERTUZUMAB. [Concomitant]
     Active Substance: PERTUZUMAB
  11. MS CONTIN [Concomitant]
     Active Substance: MORPHINE SULFATE
  12. ZOFRAN [Concomitant]
     Active Substance: ONDANSETRON HYDROCHLORIDE
  13. ZOMETA [Concomitant]
     Active Substance: ZOLEDRONIC ACID
  14. DEXAMETHASONE. [Concomitant]
     Active Substance: DEXAMETHASONE

REACTIONS (2)
  - Alopecia [Not Recovered/Not Resolved]
  - Psychological trauma [Unknown]

NARRATIVE: CASE EVENT DATE: 201512
